FAERS Safety Report 7313292-6 (Version None)
Quarter: 2011Q1

REPORT INFORMATION
  Report Type: 
  Country: None (occurrence: None)
  Receive Date: 20110217
  Receipt Date: 20110217
  Transmission Date: 20110831
  Serious: Yes (Hospitalization)
  Sender: FDA-Public Use
  Company Number: None

PATIENT
  Age: 49 Year
  Sex: Male
  Weight: 71.6683 kg

DRUGS (7)
  1. DIVALPROEX SODIUM [Concomitant]
  2. RISPERIDONE [Suspect]
     Indication: SCHIZOAFFECTIVE DISORDER
     Dosage: 4MG BID TRANSDERMAL
     Route: 062
     Dates: start: 20100922, end: 20110209
  3. ACETAMINOPHEN [Concomitant]
  4. CLONAZEPAM [Concomitant]
  5. LISINOPRIL [Concomitant]
  6. ALBUTEROL INHALER [Concomitant]
  7. BENZTROPINE MESYLATE [Concomitant]

REACTIONS (8)
  - UNRESPONSIVE TO STIMULI [None]
  - BODY TEMPERATURE INCREASED [None]
  - LOSS OF CONSCIOUSNESS [None]
  - MENTAL STATUS CHANGES [None]
  - ADVERSE DRUG REACTION [None]
  - BLOOD PRESSURE INCREASED [None]
  - NEUROLEPTIC MALIGNANT SYNDROME [None]
  - CONVULSION [None]
